FAERS Safety Report 5831808-3 (Version None)
Quarter: 2008Q3

REPORT INFORMATION
  Report Type: 
  Country: None (occurrence: None)
  Receive Date: 20080804
  Receipt Date: 20080728
  Transmission Date: 20090109
  Serious: Yes (Hospitalization)
  Sender: FDA-Public Use
  Company Number: FR-ELI_LILLY_AND_COMPANY-FR200807005323

PATIENT
  Age: 76 Year
  Sex: Female

DRUGS (7)
  1. ZYPREXA [Suspect]
     Dates: start: 20030101
  2. ZYPREXA [Suspect]
     Dosage: UNK, UNK
     Dates: start: 20030601
  3. ARICEPT [Concomitant]
     Dates: start: 20020101, end: 20050401
  4. MEPROBAMATE [Concomitant]
     Dates: start: 20030101
  5. TRIMEPRAZINE TAB [Concomitant]
     Dates: start: 20030101
  6. TIAPRIDE [Concomitant]
     Dates: start: 20030101
  7. MEMANTINE HCL [Concomitant]
     Dates: start: 20030301

REACTIONS (1)
  - PLEUROTHOTONUS [None]
